FAERS Safety Report 10482783 (Version 3)
Quarter: 2015Q1

REPORT INFORMATION
  Report Type: Spontaneous
  Country: MX (occurrence: MX)
  Receive Date: 20140929
  Receipt Date: 20150114
  Transmission Date: 20150720
  Serious: Yes (Disabling)
  Sender: FDA-Public Use
  Company Number: MX-ASTRAZENECA-2014SE67778

PATIENT
  Age: 77 Year
  Sex: Female
  Weight: 59 kg

DRUGS (9)
  1. SODIUM LEVOTHYROXINE [Concomitant]
     Indication: DEPRESSION
     Dosage: ALTERNATED WITH DOSE OF 100 MG, 75 MG QAM
     Route: 048
     Dates: start: 2000
  2. OVESTIN [Concomitant]
     Active Substance: ESTRIOL
     Indication: HORMONE THERAPY
     Route: 048
     Dates: start: 2000
  3. SEROQUEL XR [Suspect]
     Active Substance: QUETIAPINE FUMARATE
     Indication: DEPRESSION
     Route: 048
     Dates: start: 20140830, end: 20140831
  4. SODIUM LEVOTHYROXINE [Concomitant]
     Indication: DEPRESSION
     Dosage: ALTERNATED WITH DOSE OF 75MG, 100 MG QAM
     Route: 048
     Dates: start: 2000
  5. RIVOTRIL [Concomitant]
     Active Substance: CLONAZEPAM
     Indication: ANXIETY
     Dosage: 5 DROPS, 0.5 MG AT NIGHT
     Route: 048
     Dates: start: 2013
  6. PRISTIQ EXTENDED RELEASE [Concomitant]
     Active Substance: DESVENLAFAXINE SUCCINATE
     Indication: ANTIDEPRESSANT THERAPY
     Route: 048
     Dates: start: 2000, end: 20140830
  7. PRIMARIN [Concomitant]
     Indication: HORMONE THERAPY
     Route: 048
     Dates: start: 2000
  8. BIOLAIF [Concomitant]
     Indication: PHYSICAL FITNESS TRAINING
     Route: 048
     Dates: start: 2000
  9. BINODIAN DEPOT [Concomitant]
     Indication: MENOPAUSE
     Dosage: PRASTERONE 200 MG/ ESTRADIOL 4 MG, MONTH
     Route: 030
     Dates: start: 2000

REACTIONS (16)
  - Hypertension [Recovered/Resolved]
  - Asthenia [Recovered/Resolved]
  - Rhinitis [Recovered/Resolved]
  - Abnormal dreams [Recovered/Resolved]
  - Tongue oedema [Recovered/Resolved]
  - Hypothermia [Recovered/Resolved]
  - Dry mouth [Recovered/Resolved]
  - Eye inflammation [Unknown]
  - Lip swelling [Unknown]
  - Dizziness [Recovered/Resolved]
  - Somnolence [Recovered/Resolved]
  - Tachycardia [Recovered/Resolved]
  - Dysarthria [Recovered/Resolved]
  - Face oedema [Recovered/Resolved]
  - Pruritus generalised [Recovered/Resolved]
  - Tinnitus [Recovered/Resolved]

NARRATIVE: CASE EVENT DATE: 20140830
